FAERS Safety Report 6833419-X (Version None)
Quarter: 2010Q3

REPORT INFORMATION
  Report Type: 
  Country: None (occurrence: None)
  Receive Date: 20100712
  Receipt Date: 20070321
  Transmission Date: 20110219
  Serious: No
  Sender: FDA-Public Use
  Company Number: US-PFIZER INC-2007022679

PATIENT
  Sex: Female
  Weight: 95.71 kg

DRUGS (5)
  1. CHANTIX [Suspect]
     Indication: SMOKING CESSATION THERAPY
     Dates: start: 20070311
  2. PAN-MIST [Concomitant]
  3. NORETHISTERONE [Concomitant]
  4. PROMETHAZINE [Concomitant]
  5. NEXIUM [Concomitant]

REACTIONS (6)
  - ARTHRALGIA [None]
  - BACK PAIN [None]
  - FEELING ABNORMAL [None]
  - JOINT SWELLING [None]
  - MYALGIA [None]
  - PAIN [None]
